FAERS Safety Report 6019000-3 (Version None)
Quarter: 2008Q4

REPORT INFORMATION
  Report Type: 
  Country: None (occurrence: None)
  Receive Date: 20081224
  Receipt Date: 20081217
  Transmission Date: 20090506
  Serious: Yes (Disabling, Other)
  Sender: FDA-Public Use
  Company Number: JP-JNJFOC-20070700376

PATIENT
  Sex: Male

DRUGS (14)
  1. DOXIL [Suspect]
     Indication: KAPOSI'S SARCOMA
     Dosage: 30MG PER 3 TO 4 WEEKS
     Route: 042
  2. ETHAMBUTOL HYDROCHLORIDE [Suspect]
     Indication: ATYPICAL MYCOBACTERIAL INFECTION
     Route: 048
  3. NORVIR [Concomitant]
     Indication: HIV INFECTION
     Route: 048
  4. REYATAZ [Concomitant]
     Indication: HIV INFECTION
     Route: 048
  5. EPZICOM [Concomitant]
     Indication: ACQUIRED IMMUNODEFICIENCY SYNDROME
     Route: 048
  6. VALGANCICLOVIR HCL [Concomitant]
     Indication: CYTOMEGALOVIRUS OESOPHAGITIS
     Route: 048
  7. ZITHROMAX [Concomitant]
     Route: 048
  8. ZITHROMAX [Concomitant]
     Indication: MYCOBACTERIUM AVIUM COMPLEX INFECTION
     Route: 048
  9. ETHAMBUTOL HCL [Concomitant]
     Indication: MYCOBACTERIUM AVIUM COMPLEX INFECTION
     Route: 065
  10. RIFABUTIN [Concomitant]
     Indication: MYCOBACTERIUM AVIUM COMPLEX INFECTION
     Route: 048
  11. COTRIM [Concomitant]
     Indication: PNEUMOCYSTIS JIROVECI PNEUMONIA
     Route: 048
  12. CLARITHROMYCIN [Concomitant]
     Indication: ATYPICAL MYCOBACTERIAL INFECTION
     Route: 048
  13. AZITHROMYCIN HYDRATE [Concomitant]
     Indication: ATYPICAL MYCOBACTERIAL INFECTION
     Route: 048
  14. RIFABUTIN [Concomitant]
     Indication: ATYPICAL MYCOBACTERIAL INFECTION
     Route: 065

REACTIONS (2)
  - HEPATIC FUNCTION ABNORMAL [None]
  - VISUAL FIELD DEFECT [None]
